FAERS Safety Report 8786137 (Version 1)
Quarter: 2012Q4

REPORT INFORMATION
  Report Type: Report from Study
  Country: US (occurrence: US)
  Receive Date: 20120914
  Receipt Date: 20120914
  Transmission Date: 20130627
  Serious: No
  Sender: FDA-Public Use
  Company Number: US-VERTEX PHARMACEUTICAL INC.-AE-2012-008577

PATIENT

DRUGS (4)
  1. INCIVEK [Suspect]
     Indication: HEPATITIS C
     Route: 048
     Dates: start: 20120314, end: 20120606
  2. RIBAVIRIN [Concomitant]
     Indication: HEPATITIS C
     Dates: start: 20120314
  3. RIBAVIRIN [Concomitant]
     Dates: start: 201206
  4. PEGASYS [Concomitant]
     Indication: HEPATITIS C
     Dates: start: 20120314

REACTIONS (16)
  - Dysarthria [Unknown]
  - Hepatic pain [Unknown]
  - Hepatomegaly [Unknown]
  - Dyspnoea [Not Recovered/Not Resolved]
  - Weight decreased [Not Recovered/Not Resolved]
  - Myalgia [Not Recovered/Not Resolved]
  - Memory impairment [Unknown]
  - Somnolence [Unknown]
  - Contusion [Not Recovered/Not Resolved]
  - Dry mouth [Not Recovered/Not Resolved]
  - Alopecia [Not Recovered/Not Resolved]
  - Malaise [Not Recovered/Not Resolved]
  - Fatigue [Not Recovered/Not Resolved]
  - Nausea [Not Recovered/Not Resolved]
  - Anaemia [Not Recovered/Not Resolved]
  - Dysgeusia [Not Recovered/Not Resolved]
